FAERS Safety Report 24985730 (Version 2)
Quarter: 2025Q1

REPORT INFORMATION
  Report Type: Spontaneous
  Country: CN (occurrence: CN)
  Receive Date: 20250219
  Receipt Date: 20250220
  Transmission Date: 20250408
  Serious: Yes (Other)
  Sender: Kenvue
  Company Number: CN-KENVUE-20250202704

PATIENT

DRUGS (6)
  1. CHILDRENS MOTRIN [Suspect]
     Active Substance: IBUPROFEN
     Indication: Pyrexia
     Dosage: 5 MILLILITER, TWICE A DAY
     Route: 048
     Dates: start: 20250124, end: 20250127
  2. CHILDRENS MOTRIN [Suspect]
     Active Substance: IBUPROFEN
     Indication: Mycoplasma infection
  3. CEFIXIME [Suspect]
     Active Substance: CEFIXIME
     Indication: Pyrexia
     Dosage: 40 MILLIGRAM, TWICE A DAY
     Route: 048
     Dates: start: 20250124, end: 20250127
  4. CEFIXIME [Suspect]
     Active Substance: CEFIXIME
     Indication: Mycoplasma infection
  5. ACETAMINOPHEN\BOS TAURUS GALLSTONE\CHLORPHENIRAMINE MALEATE [Suspect]
     Active Substance: ACETAMINOPHEN\BOS TAURUS GALLSTONE\CHLORPHENIRAMINE MALEATE
     Indication: Pyrexia
     Dosage: 1 DOSAGE FORM, THRICE A DAY
     Route: 048
     Dates: start: 20250124, end: 20250127
  6. ACETAMINOPHEN\BOS TAURUS GALLSTONE\CHLORPHENIRAMINE MALEATE [Suspect]
     Active Substance: ACETAMINOPHEN\BOS TAURUS GALLSTONE\CHLORPHENIRAMINE MALEATE
     Indication: Mycoplasma infection

REACTIONS (3)
  - Off label use [Unknown]
  - Alanine aminotransferase increased [Recovering/Resolving]
  - Aspartate aminotransferase increased [Recovering/Resolving]

NARRATIVE: CASE EVENT DATE: 20250124
